FAERS Safety Report 23468322 (Version 2)
Quarter: 2024Q1

REPORT INFORMATION
  Report Type: Report from Study
  Country: PT (occurrence: PT)
  Receive Date: 20240201
  Receipt Date: 20240208
  Transmission Date: 20240409
  Serious: Yes (Hospitalization)
  Sender: FDA-Public Use
  Company Number: PT-ABBVIE-5611416

PATIENT
  Age: 79 Year
  Sex: Male

DRUGS (16)
  1. CARBIDOPA\LEVODOPA [Suspect]
     Active Substance: CARBIDOPA\LEVODOPA
     Indication: Parkinson^s disease
     Dosage: 20 MG + 5 MG (GASTRIC)?MORNING:16CC;MAIN:5.8CC/H;EXTRA:6.7CC
     Route: 050
     Dates: start: 20230921
  2. CARBIDOPA\LEVODOPA [Suspect]
     Active Substance: CARBIDOPA\LEVODOPA
     Dosage: 20 MG + 5 MG?DRUG START DATE 2023?MORNING:7.3CC;MAIN:4.3CC/H;EXTRA:1CC
     Route: 050
     Dates: end: 20230921
  3. CARBIDOPA\LEVODOPA [Suspect]
     Active Substance: CARBIDOPA\LEVODOPA
     Dosage: 20 MG + 5 MG?DRUG END DATE 2023?MORNING:16CC;MAIN:5.8CC/H;EXTRA:6.7CC?LAST ADMIN DATE: 2023
     Route: 050
     Dates: start: 20230621
  4. SIMVASTATIN MEDINEO [Concomitant]
     Indication: Product used for unknown indication
     Dosage: 1 TABLET?FORM STRENGTH: 20 MILLIGRAM?AT BEDTIME?BEFORE DUODOPA
  5. EDOXABAN TOSYLATE [Concomitant]
     Active Substance: EDOXABAN TOSYLATE
     Indication: Product used for unknown indication
     Dosage: 1 TABLET?FORM STRENGTH: 60 MILLIGRAM?BEFORE DUODOPA
  6. NEUROBION [Concomitant]
     Active Substance: CYANOCOBALAMIN\PYRIDOXINE\THIAMINE
     Indication: Product used for unknown indication
     Dosage: 1 TABLET?BEFORE DUODOPA
  7. MEMANTINE HYDROCHLORIDE [Concomitant]
     Active Substance: MEMANTINE HYDROCHLORIDE
     Indication: Product used for unknown indication
     Dosage: 2 TABLET?FORM STRENGTH: 10 MILLIGRAM?AT BREAKFAST AND AT DINNER?BEFORE DUODOPA
  8. RIVOTRIL [Concomitant]
     Active Substance: CLONAZEPAM
     Indication: Product used for unknown indication
     Dosage: 1 TABLET?FORM STRENGTH: 0.5 MILLIGRAM?AT BEDTIME?BEFORE DUODOPA
  9. CYANOCOBALAMIN\FOLIC ACID\PYRIDOXINE HYDROCHLORIDE [Concomitant]
     Active Substance: CYANOCOBALAMIN\FOLIC ACID\PYRIDOXINE HYDROCHLORIDE
     Indication: Product used for unknown indication
     Dosage: FORM STRENGTH: 5 MILLIGRAM?1 TABLET AT LUNCH ON SATURDAYS + SUNDAYS?BEFORE DUODOPA
  10. JUTEO [Concomitant]
     Indication: Product used for unknown indication
     Dosage: 5 MG + 4 MG?1 TABLET AT LUNCH?BEFORE DUODOPA
  11. TUNELUX [Concomitant]
     Indication: Product used for unknown indication
     Dosage: FORM STRENGTH: 20 MILLIGRAM?AT BREAKFAST, EVERY OTHER DAY?BEFORE DUODOPA
  12. MIRABEGRON [Concomitant]
     Active Substance: MIRABEGRON
     Indication: Product used for unknown indication
     Dosage: 1 CAPSULE?FORM STRENGTH: 25 MILLIGRAM?AT BREAKFAST?BEFORE DUODQPA
  13. PANTOPRAZOLE [Concomitant]
     Active Substance: PANTOPRAZOLE
     Indication: Product used for unknown indication
     Dosage: 1 TABLET?FORM STRENGTH: 20 MILLIGRAM?AT FASTING?BEFORE DUODOPA
  14. RAMIPRIL [Concomitant]
     Active Substance: RAMIPRIL
     Indication: Product used for unknown indication
     Dosage: 1 TABLET?FORM STRENGTH: 5 MILLIGRAM?AT BREAKFAST?BEFORE DUODOPA
  15. SINEMET CR [Concomitant]
     Active Substance: CARBIDOPA\LEVODOPA
     Indication: Product used for unknown indication
     Dosage: 1 TABLET?AT BEDTIME?BEFORE DUODOPA?200/50
  16. EXELON [Concomitant]
     Active Substance: RIVASTIGMINE TARTRATE
     Indication: Product used for unknown indication
     Dosage: 13,3 MG/24H?1 PATCH DAILY?BEFORE DUODOPA

REACTIONS (2)
  - Bradycardia [Recovered/Resolved]
  - Hypotension [Recovered/Resolved]

NARRATIVE: CASE EVENT DATE: 20240123
